FAERS Safety Report 10861899 (Version 1)
Quarter: 2015Q1

REPORT INFORMATION
  Report Type: Spontaneous
  Country: US (occurrence: US)
  Receive Date: 20150224
  Receipt Date: 20150224
  Transmission Date: 20150721
  Serious: Yes (Hospitalization)
  Sender: FDA-Public Use
  Company Number: US-ASTRAZENECA-2015SE15551

PATIENT
  Sex: Male
  Weight: 3.6 kg

DRUGS (7)
  1. SYNAGIS [Suspect]
     Active Substance: PALIVIZUMAB
     Dosage: 100 MG/ 1 ML, 15 MG/KG MONTHLY
     Route: 030
     Dates: start: 20141228
  2. SYNAGIS [Suspect]
     Active Substance: PALIVIZUMAB
     Dosage: 100 MG/ 1 ML, 15 MG/KG MONTHLY
     Route: 030
     Dates: start: 20150202
  3. CLINDAMYCIN [Concomitant]
     Active Substance: CLINDAMYCIN\CLINDAMYCIN PHOSPHATE
  4. LASIX [Concomitant]
     Active Substance: FUROSEMIDE
  5. ANTIBIOTICS [Concomitant]
     Active Substance: UNSPECIFIED INGREDIENT
  6. DIGOXIN. [Concomitant]
     Active Substance: DIGOXIN
  7. ASPIRIN. [Concomitant]
     Active Substance: ASPIRIN

REACTIONS (2)
  - Post procedural inflammation [Unknown]
  - Pyrexia [Unknown]
